FAERS Safety Report 17150637 (Version 1)
Quarter: 2019Q4

REPORT INFORMATION
  Report Type: Spontaneous
  Country: US (occurrence: US)
  Receive Date: 20191120
  Receipt Date: 20191120
  Transmission Date: 20200122
  Serious: Yes (Hospitalization)
  Sender: FDA-Public Use
  Company Number: None

PATIENT
  Age: 81 Year
  Sex: Male

DRUGS (16)
  1. ALFUZION [Concomitant]
  2. LANTUS [Concomitant]
     Active Substance: INSULIN GLARGINE
  3. ANASTROZOLE. [Concomitant]
     Active Substance: ANASTROZOLE
  4. ASPIRIN. [Concomitant]
     Active Substance: ASPIRIN
  5. GLUCO/CHONDR [Concomitant]
  6. NUTRIENT [Concomitant]
  7. LISINOPRIL. [Concomitant]
     Active Substance: LISINOPRIL
  8. OMEGA 3 KRILL [Concomitant]
  9. SIMVASTATIN. [Concomitant]
     Active Substance: SIMVASTATIN
  10. TESTOPEL [Suspect]
     Active Substance: TESTOSTERONE
     Indication: ERECTILE DYSFUNCTION
     Dosage: ?          OTHER FREQUENCY:EVERY 4 MONTHS;?
     Route: 058
     Dates: start: 20150701
  11. ELIQUIS [Concomitant]
     Active Substance: APIXABAN
  12. FUROSEMIDE. [Concomitant]
     Active Substance: FUROSEMIDE
  13. HYDRALAZINE [Concomitant]
     Active Substance: HYDRALAZINE HYDROCHLORIDE
  14. ZYRTEC [Concomitant]
     Active Substance: CETIRIZINE HYDROCHLORIDE
  15. OMEPRAZOLE. [Concomitant]
     Active Substance: OMEPRAZOLE
  16. JOINT [Concomitant]

REACTIONS (3)
  - Dyspnoea [None]
  - Pneumonia [None]
  - Thrombosis [None]

NARRATIVE: CASE EVENT DATE: 2019
